FAERS Safety Report 9798775 (Version 1)
Quarter: 2014Q1

REPORT INFORMATION
  Report Type: Spontaneous
  Country: US (occurrence: None)
  Receive Date: 20140103
  Receipt Date: 20140103
  Transmission Date: 20141002
  Serious: Yes (Life-Threatening, Hospitalization)
  Sender: FDA-Public Use
  Company Number: None

PATIENT
  Age: 76 Year
  Sex: Male
  Weight: 95.7 kg

DRUGS (1)
  1. WARFARIN [Suspect]
     Indication: AORTIC VALVE REPLACEMENT
     Dates: start: 19920101, end: 20131015

REACTIONS (2)
  - Subdural haematoma [None]
  - Musculoskeletal chest pain [None]
